FAERS Safety Report 6194498-9 (Version None)
Quarter: 2009Q2

REPORT INFORMATION
  Report Type: 
  Country: None (occurrence: None)
  Receive Date: 20090519
  Receipt Date: 20070405
  Transmission Date: 20091009
  Serious: Yes (Hospitalization, Other)
  Sender: FDA-Public Use
  Company Number: US-ASTRAZENECA-2006UW24726

PATIENT
  Age: 16330 Day
  Sex: Male
  Weight: 113.4 kg

DRUGS (11)
  1. SEROQUEL [Suspect]
     Indication: DEPRESSION
     Dosage: 100-150 MG
     Route: 048
     Dates: start: 20020701, end: 20030514
  2. SEROQUEL [Suspect]
     Indication: ANXIETY
     Dosage: 100-150 MG
     Route: 048
     Dates: start: 20020701, end: 20030514
  3. SEROQUEL [Suspect]
     Indication: SLEEP DISORDER
     Dosage: 100-150 MG
     Route: 048
     Dates: start: 20020701, end: 20030514
  4. VENLAFAXINE HCL [Concomitant]
     Route: 048
  5. DIPHENHYDRAMINE HCL [Concomitant]
     Route: 048
  6. GLYBURIDE [Concomitant]
     Dosage: 5-10 MG
     Route: 048
  7. HYDROCHLOROTHIAZIDE [Concomitant]
     Route: 048
  8. FLUOXETINE HCL [Concomitant]
     Route: 048
  9. METFORMIN HCL [Concomitant]
     Dosage: 1000-1500 MG
     Route: 048
  10. ENALAPRIL [Concomitant]
     Dosage: 5-20 MG
     Route: 048
  11. LOVASTATIN [Concomitant]
     Route: 048

REACTIONS (20)
  - ADJUSTMENT DISORDER [None]
  - ANTISOCIAL PERSONALITY DISORDER [None]
  - BIPOLAR DISORDER [None]
  - DIABETES MELLITUS [None]
  - FOOT DEFORMITY [None]
  - FURUNCLE [None]
  - GASTROENTERITIS [None]
  - HALLUCINATION, AUDITORY [None]
  - HEPATITIS C [None]
  - HYPERTENSION [None]
  - INGROWING NAIL [None]
  - KERATOCONJUNCTIVITIS SICCA [None]
  - MANIA [None]
  - PINGUECULA [None]
  - PSYCHOTIC DISORDER [None]
  - RASH [None]
  - SUBSTANCE ABUSE [None]
  - SUICIDAL IDEATION [None]
  - TINEA PEDIS [None]
  - VISION BLURRED [None]
